FAERS Safety Report 6534228-1 (Version None)
Quarter: 2010Q1

REPORT INFORMATION
  Report Type: 
  Country: None (occurrence: None)
  Receive Date: 20100112
  Receipt Date: 20091225
  Transmission Date: 20100710
  Serious: Yes (Other)
  Sender: FDA-Public Use
  Company Number: PHHY2009JP48320

PATIENT
  Sex: Female
  Weight: 37 kg

DRUGS (16)
  1. DIOVAN [Suspect]
     Indication: HYPERTENSION
     Dosage: 80 MG PER DAY
     Route: 048
     Dates: start: 20080701, end: 20090619
  2. AMLODIN [Concomitant]
     Indication: HYPERTENSION
     Dosage: 10 MG PER DAY
     Route: 048
     Dates: start: 20070919
  3. AMLODIN [Concomitant]
     Dosage: 10 MG PER DAY
     Route: 048
     Dates: start: 20070919
  4. RENIVACE [Concomitant]
     Indication: HYPERTENSION
     Dosage: 20 MG, UNK
     Route: 048
     Dates: start: 20070907
  5. RENIVACE [Concomitant]
     Dosage: 10 MG, UNK
     Route: 048
  6. RENIVACE [Concomitant]
     Dosage: 10 MG, UNK
     Route: 048
     Dates: end: 20090312
  7. ADALAT CC [Concomitant]
     Indication: HYPERTENSION
     Dosage: 20 MG, UNK
     Route: 048
     Dates: start: 20081114, end: 20090205
  8. COVERSYL [Concomitant]
     Indication: HYPERTENSION
     Dosage: 8 MG, UNK
     Route: 048
     Dates: start: 20090312
  9. DIART [Concomitant]
     Dosage: 90 MG, UNK
     Route: 048
     Dates: start: 20070827, end: 20081113
  10. DIART [Concomitant]
     Dosage: 120 MG, UNK
     Route: 048
     Dates: start: 20090122
  11. LIPITOR [Concomitant]
     Dosage: 10 MG, UNK
     Route: 048
     Dates: start: 20080417
  12. LASIX [Concomitant]
     Dosage: 60 MG, UNK
     Route: 048
     Dates: start: 20081113
  13. LASIX [Concomitant]
     Dosage: 60 MG, UNK
     Route: 048
     Dates: start: 20081113
  14. GASMOTIN [Concomitant]
     Dosage: 15 MG, UNK
     Route: 048
     Dates: start: 20081107
  15. ARGAMATE [Concomitant]
     Dosage: 75 MG, UNK
     Route: 048
     Dates: start: 20081106, end: 20090614
  16. ZYLORIC [Concomitant]
     Dosage: 100 MG, UNK
     Route: 048
     Dates: start: 20090226

REACTIONS (3)
  - BLOOD URIC ACID INCREASED [None]
  - DIALYSIS [None]
  - HYPERKALAEMIA [None]
